FAERS Safety Report 10358605 (Version 2)
Quarter: 2014Q3

REPORT INFORMATION
  Report Type: Report from Study
  Country: BR (occurrence: BR)
  Receive Date: 20140803
  Receipt Date: 20140827
  Transmission Date: 20150326
  Serious: No
  Sender: FDA-Public Use
  Company Number: PHHY2014BR092713

PATIENT
  Age: 62 Year
  Sex: Female

DRUGS (9)
  1. OMEPRAZOLE. [Suspect]
     Active Substance: OMEPRAZOLE
     Indication: GASTRITIS
     Dosage: 1 TABLET, DAILY
  2. MERITOR [Suspect]
     Active Substance: GLIMEPIRIDE\METFORMIN
     Indication: DIABETES MELLITUS
     Dosage: 0.5 DF (2/1000MG) IN THE MORNING AND 0.5 TABLET AT LUNCH
     Route: 048
  3. HIDROMED [Suspect]
     Active Substance: HYDROCHLOROTHIAZIDE
     Indication: HYPERTENSION
     Dosage: 2 DF, DAILY
     Route: 048
  4. METFORMIN [Suspect]
     Active Substance: METFORMIN HYDROCHLORIDE
     Indication: DIABETES MELLITUS
     Dosage: 1 TABLET, DAILY
  5. DAONIL [Suspect]
     Active Substance: GLYBURIDE
     Indication: DIABETES MELLITUS
     Dosage: 1 TABLET, DAILY
     Route: 048
  6. GALVUS MET [Suspect]
     Active Substance: METFORMIN HYDROCHLORIDE\VILDAGLIPTIN
     Indication: DIABETES MELLITUS
     Dosage: 1 DF (850/50MG), QD AT NIGHT
     Route: 048
  7. OMEGA 3 [Suspect]
     Active Substance: OMEGA-3 FATTY ACIDS
     Indication: ASTHENIA
     Dosage: 2 TABLETS, DAILY
     Route: 048
  8. LOSARTAN [Suspect]
     Active Substance: LOSARTAN
     Indication: HYPERTENSION
     Dosage: 2 DF (50MG) DAILY
     Route: 048
  9. FLUOXETINE [Concomitant]
     Active Substance: FLUOXETINE\FLUOXETINE HYDROCHLORIDE
     Indication: NERVOUSNESS
     Dosage: 1 TABLET, DAILY
     Route: 048

REACTIONS (11)
  - Visual impairment [Recovering/Resolving]
  - Vomiting [Recovered/Resolved]
  - Diarrhoea [Recovered/Resolved]
  - Tremor [Not Recovered/Not Resolved]
  - Muscular weakness [Recovered/Resolved]
  - Weight increased [Recovering/Resolving]
  - Abdominal pain upper [Recovering/Resolving]
  - Decreased appetite [Recovering/Resolving]
  - Chills [Recovered/Resolved]
  - Feeling abnormal [Recovering/Resolving]
  - Blood glucose decreased [Not Recovered/Not Resolved]

NARRATIVE: CASE EVENT DATE: 20140724
